FAERS Safety Report 5300947-8 (Version None)
Quarter: 2007Q2

REPORT INFORMATION
  Report Type: 
  Country: None (occurrence: None)
  Receive Date: 20070411
  Receipt Date: 20070403
  Transmission Date: 20071010
  Serious: Yes (Other)
  Sender: FDA-Public Use
  Company Number: 163-21880-07040175

PATIENT
  Age: 60 Year
  Sex: Female

DRUGS (4)
  1. REVLIMID [Suspect]
     Indication: MULTIPLE MYELOMA
     Dosage: 25 MG, QD, ON DAYS 1-21, EVERY 28 DAYS, ORAL
     Route: 048
     Dates: start: 20050426, end: 20070314
  2. DEXAMETHASONE TAB [Suspect]
     Indication: MULTIPLE MYELOMA
     Dosage: 40 MG, QD ON DAYS, 1, 8, 15 AND 22, EVERY 28 DAYS, ORAL
     Route: 048
     Dates: start: 20050426, end: 20070314
  3. ABILIFY (ARIPRIPRAZOLE) [Concomitant]
  4. MIRTAZAPINE [Concomitant]

REACTIONS (3)
  - HERPES ZOSTER [None]
  - MUCOSAL INFLAMMATION [None]
  - STOMATITIS [None]
